FAERS Safety Report 12420958 (Version 2)
Quarter: 2016Q2

REPORT INFORMATION
  Report Type: Spontaneous
  Country: US (occurrence: US)
  Receive Date: 20160531
  Receipt Date: 20160609
  Transmission Date: 20160815
  Serious: No
  Sender: FDA-Public Use
  Company Number: US-PFIZER INC-2016274607

PATIENT
  Age: 81 Year
  Sex: Male
  Weight: 65.77 kg

DRUGS (5)
  1. LISINOPRIL. [Suspect]
     Active Substance: LISINOPRIL
     Dosage: 5 MG, 2X/DAY
     Route: 048
  2. AMLODIPINA MYLAN [Suspect]
     Active Substance: AMLODIPINE BESYLATE
     Indication: BLOOD POTASSIUM ABNORMAL
  3. AMLODIPINA MYLAN [Suspect]
     Active Substance: AMLODIPINE BESYLATE
     Indication: BLOOD POTASSIUM ABNORMAL
     Dosage: 5 MG, 2X/DAY
     Route: 048
     Dates: start: 20160511
  4. AMLODIPINA MYLAN [Suspect]
     Active Substance: AMLODIPINE BESYLATE
     Indication: HYPERTENSION
  5. LISINOPRIL. [Suspect]
     Active Substance: LISINOPRIL
     Indication: BLOOD PRESSURE ABNORMAL
     Dosage: 2.5 MG, AS NEEDED

REACTIONS (4)
  - Oedema [Recovering/Resolving]
  - Blood potassium increased [Unknown]
  - Oedema peripheral [Recovered/Resolved]
  - Blood pressure inadequately controlled [Not Recovered/Not Resolved]
